FAERS Safety Report 23360180 (Version 3)
Quarter: 2024Q2

REPORT INFORMATION
  Report Type: Spontaneous
  Country: US (occurrence: US)
  Receive Date: 20240103
  Receipt Date: 20240619
  Transmission Date: 20240716
  Serious: Yes (Other)
  Sender: FDA-Public Use
  Company Number: US-BRISTOL-MYERS SQUIBB COMPANY-2024-000487

PATIENT
  Age: 71 Year
  Sex: Male
  Weight: 79.38 kg

DRUGS (2)
  1. POMALYST [Suspect]
     Active Substance: POMALIDOMIDE
     Indication: Plasma cell myeloma
     Dosage: 3WKSON,1WKOFF
     Route: 048
  2. POMALYST [Suspect]
     Active Substance: POMALIDOMIDE
     Dosage: 3WKSON,1WKOFF
     Route: 048

REACTIONS (3)
  - Neuropathy peripheral [Unknown]
  - Constipation [Unknown]
  - Gastrooesophageal reflux disease [Unknown]
